FAERS Safety Report 9266235 (Version 2)
Quarter: 2013Q2

REPORT INFORMATION
  Report Type: Spontaneous
  Country: TR (occurrence: TR)
  Receive Date: 20130502
  Receipt Date: 20130516
  Transmission Date: 20140414
  Serious: Yes (Other)
  Sender: FDA-Public Use
  Company Number: TR-RANBAXY-2013RR-68360

PATIENT
  Sex: 0

DRUGS (2)
  1. IBUPROFEN [Suspect]
     Indication: PATENT DUCTUS ARTERIOSUS
     Dosage: UNK
     Route: 065
  2. CALPOL [Concomitant]
     Indication: PATENT DUCTUS ARTERIOSUS
     Dosage: 15 MG/KG, QID
     Route: 065

REACTIONS (1)
  - Renal failure [Unknown]
